FAERS Safety Report 16977308 (Version 2)
Quarter: 2020Q1

REPORT INFORMATION
  Report Type: Spontaneous
  Country: FR (occurrence: FR)
  Receive Date: 20191031
  Receipt Date: 20200109
  Transmission Date: 20200409
  Serious: Yes (Hospitalization)
  Sender: FDA-Public Use
  Company Number: FR-TEVA-2019-FR-1129312

PATIENT
  Age: 67 Year
  Sex: Male
  Weight: 114 kg

DRUGS (14)
  1. SPIRONOLACTONE. [Suspect]
     Active Substance: SPIRONOLACTONE
     Indication: HYPERTENSION
     Dosage: 75 MG
     Route: 048
     Dates: end: 20190605
  2. LANTUS [Concomitant]
     Active Substance: INSULIN GLARGINE
  3. AMLODIPINE [Concomitant]
     Active Substance: AMLODIPINE BESYLATE
  4. LOVENOX [Concomitant]
     Active Substance: ENOXAPARIN SODIUM
  5. PERINDOPRIL [Suspect]
     Active Substance: PERINDOPRIL
     Indication: HYPERTENSION
     Dosage: 2 MG
     Route: 048
     Dates: end: 20190605
  6. LEVOTHYROX 25 MICROGRAMMES, COMPRIME SECABLE [Concomitant]
     Active Substance: LEVOTHYROXINE
  7. NEBIVOLOL. [Concomitant]
     Active Substance: NEBIVOLOL
  8. RISPERIDONE. [Concomitant]
     Active Substance: RISPERIDONE
  9. NOVORAPID [Concomitant]
     Active Substance: INSULIN ASPART
  10. TERALITHE [Concomitant]
     Active Substance: LITHIUM CARBONATE
  11. FUROSEMIDE. [Suspect]
     Active Substance: FUROSEMIDE
     Indication: HYPERTENSION
     Dosage: 120 MG
     Route: 048
     Dates: end: 20190605
  12. ACIDE FOLIQUE [Concomitant]
     Active Substance: FOLIC ACID
  13. LAROXYL [Concomitant]
     Active Substance: AMITRIPTYLINE HYDROCHLORIDE
  14. LACTULOSE. [Concomitant]
     Active Substance: LACTULOSE

REACTIONS (1)
  - Acute kidney injury [Recovering/Resolving]

NARRATIVE: CASE EVENT DATE: 20190605
